FAERS Safety Report 15248951 (Version 2)
Quarter: 2018Q3

REPORT INFORMATION
  Report Type: Spontaneous
  Country: US (occurrence: US)
  Receive Date: 20180807
  Receipt Date: 20180808
  Transmission Date: 20181010
  Serious: No
  Sender: FDA-Public Use
  Company Number: US-PFIZER INC-2018313141

PATIENT
  Sex: Female

DRUGS (1)
  1. PROCARDIA XL [Suspect]
     Active Substance: NIFEDIPINE
     Dosage: UNK

REACTIONS (1)
  - Productive cough [Unknown]
